FAERS Safety Report 6304215-7 (Version None)
Quarter: 2009Q3

REPORT INFORMATION
  Report Type: 
  Country: None (occurrence: None)
  Receive Date: 20090811
  Receipt Date: 20090806
  Transmission Date: 20100115
  Serious: Yes (Hospitalization)
  Sender: FDA-Public Use
  Company Number: CH-TEVA-205178ISR

PATIENT
  Age: 83 Year
  Sex: Female

DRUGS (6)
  1. PAROXETINE [Suspect]
     Route: 048
  2. ACETYLSALICYLIC ACID [Suspect]
     Route: 048
     Dates: end: 20081101
  3. VASERETIC [Concomitant]
     Route: 048
  4. CARVEDILOL [Concomitant]
     Route: 048
  5. GLIMEPIRIDE [Concomitant]
     Route: 048
  6. FLUOXETINE HYDROCHLORIDE [Concomitant]
     Route: 048

REACTIONS (3)
  - GASTRIC CANCER [None]
  - HAEMATEMESIS [None]
  - HAEMORRHAGIC ANAEMIA [None]
